FAERS Safety Report 23715094 (Version 1)
Quarter: 2024Q2

REPORT INFORMATION
  Report Type: Other
  Country: AE (occurrence: AE)
  Receive Date: 20240406
  Receipt Date: 20240406
  Transmission Date: 20240716
  Serious: Yes (Hospitalization)
  Sender: FDA-Public Use
  Company Number: AE-B.Braun Medical Inc.-2155281

PATIENT
  Age: 56 Year
  Sex: Male

DRUGS (7)
  1. CEFTRIAXONE SODIUM [Suspect]
     Active Substance: CEFTRIAXONE SODIUM
     Indication: White blood cell count increased
  2. CEFTRIAXONE SODIUM [Suspect]
     Active Substance: CEFTRIAXONE SODIUM
     Indication: C-reactive protein increased
  3. CEFTRIAXONE SODIUM [Suspect]
     Active Substance: CEFTRIAXONE SODIUM
     Indication: Inflammation
  4. MEROPENEM [Suspect]
     Active Substance: MEROPENEM
  5. VANCOMYCIN [Suspect]
     Active Substance: VANCOMYCIN
  6. TEICOPLANIN [Suspect]
     Active Substance: TEICOPLANIN
  7. LEVOFLOXACIN [Suspect]
     Active Substance: LEVOFLOXACIN

REACTIONS (1)
  - Drug ineffective [Unknown]
